FAERS Safety Report 5709903-9 (Version None)
Quarter: 2008Q2

REPORT INFORMATION
  Report Type: 
  Country: None (occurrence: None)
  Receive Date: 20080418
  Receipt Date: 20070423
  Transmission Date: 20081010
  Serious: No
  Sender: FDA-Public Use
  Company Number: US-ASTRAZENECA-2007UW07932

PATIENT
  Age: 88 Year
  Sex: Male

DRUGS (1)
  1. TOPROL-XL [Suspect]
     Indication: ATRIAL FIBRILLATION
     Route: 048

REACTIONS (3)
  - ANOREXIA [None]
  - ILL-DEFINED DISORDER [None]
  - PERIPHERAL COLDNESS [None]
